FAERS Safety Report 5575476-7 (Version None)
Quarter: 2007Q4

REPORT INFORMATION
  Report Type: 
  Country: None (occurrence: None)
  Receive Date: 20071221
  Receipt Date: 20071211
  Transmission Date: 20080405
  Serious: Yes (Other)
  Sender: FDA-Public Use
  Company Number: 14011027

PATIENT
  Age: 24 Year
  Sex: Female

DRUGS (1)
  1. EMSAM [Suspect]
     Dosage: TD
     Route: 062
     Dates: start: 20071101

REACTIONS (1)
  - PAPILLOEDEMA [None]
